FAERS Safety Report 5186360-5 (Version None)
Quarter: 2006Q4

REPORT INFORMATION
  Report Type: 
  Country: None (occurrence: None)
  Receive Date: 20061213
  Receipt Date: 20061130
  Transmission Date: 20070319
  Serious: Yes (Hospitalization, Other)
  Sender: FDA-Public Use
  Company Number: 2006133154

PATIENT
  Age: 81 Year
  Sex: Male

DRUGS (5)
  1. SULPERAZON (SULBACTAM, CEFOPERAZONE) [Suspect]
     Indication: INFECTION PROPHYLAXIS
     Dosage: 1 GRAM, INTRAVENOUS
     Route: 042
     Dates: start: 20050829, end: 20050829
  2. PROPOFOL [Suspect]
     Indication: INDUCTION OF ANAESTHESIA
     Dosage: 50 MG, INTRAVENOUS
     Route: 042
     Dates: start: 20050829, end: 20050829
  3. VECURONIUM BROMIDE [Suspect]
     Indication: INDUCTION OF ANAESTHESIA
     Dosage: 8 MG, INTRAVENOUS
     Route: 042
     Dates: start: 20050829, end: 20050829
  4. SEVOFLURANE [Suspect]
     Indication: MAINTENANCE OF ANAESTHESIA
     Dosage: 1%
     Dates: start: 20050829, end: 20050829
  5. DIGOXIN [Concomitant]

REACTIONS (6)
  - ANAPHYLACTIC SHOCK [None]
  - ATRIAL FIBRILLATION [None]
  - CARDIAC ARREST [None]
  - FLUSHING [None]
  - LYMPHOCYTE STIMULATION TEST POSITIVE [None]
  - VENTRICULAR FIBRILLATION [None]
